FAERS Safety Report 4809273-4 (Version None)
Quarter: 2005Q4

REPORT INFORMATION
  Report Type: 
  Country: None (occurrence: None)
  Receive Date: 20051021
  Receipt Date: 20051013
  Transmission Date: 20060501
  Serious: Yes (Hospitalization)
  Sender: FDA-Public Use
  Company Number: GXKR2005TR01795

PATIENT
  Age: 18 Year
  Sex: Female

DRUGS (1)
  1. ISONIAZID [Suspect]
     Indication: INTENTIONAL DRUG MISUSE
     Dosage: 2G, ONCE/SINGLE,ORAL
     Route: 048

REACTIONS (11)
  - ALANINE AMINOTRANSFERASE INCREASED [None]
  - ASPARTATE AMINOTRANSFERASE INCREASED [None]
  - COMA [None]
  - DRUG TOXICITY [None]
  - GRAND MAL CONVULSION [None]
  - HEPATIC ENZYME INCREASED [None]
  - HYPERGLYCAEMIA [None]
  - INTENTIONAL DRUG MISUSE [None]
  - LEUKOCYTOSIS [None]
  - METABOLIC ACIDOSIS [None]
  - OVERDOSE [None]
